FAERS Safety Report 12447378 (Version 2)
Quarter: 2016Q2

REPORT INFORMATION
  Report Type: Spontaneous
  Country: FR (occurrence: FR)
  Receive Date: 20160608
  Receipt Date: 20160622
  Transmission Date: 20160815
  Serious: Yes (Hospitalization, Other)
  Sender: FDA-Public Use
  Company Number: FR-PFIZER INC-2016286679

PATIENT
  Age: 78 Year
  Sex: Male

DRUGS (9)
  1. SECTRAL [Suspect]
     Active Substance: ACEBUTOLOL HYDROCHLORIDE
     Indication: MYOCARDIAL ISCHAEMIA
     Dosage: 1 DF, DAILY
     Route: 048
     Dates: end: 20160506
  2. TRIATEC [Suspect]
     Active Substance: RAMIPRIL
     Indication: MYOCARDIAL ISCHAEMIA
     Dosage: 1 DF, DAILY
     Route: 048
     Dates: end: 20160506
  3. ZOCOR [Concomitant]
     Active Substance: SIMVASTATIN
     Dosage: UNK
  4. METFORMIN HCL [Suspect]
     Active Substance: METFORMIN HYDROCHLORIDE
     Indication: TYPE 2 DIABETES MELLITUS
     Dosage: 850 MG, 2X/DAY
     Route: 048
     Dates: start: 1971
  5. LASILIX [Concomitant]
     Active Substance: FUROSEMIDE
     Dosage: UNK
  6. HUMALOG [Concomitant]
     Active Substance: INSULIN LISPRO
     Dosage: UNK
  7. AUGMENTIN [Concomitant]
     Active Substance: AMOXICILLIN\CLAVULANATE POTASSIUM
     Dosage: UNK
     Dates: start: 20160424
  8. PLAVIX [Concomitant]
     Active Substance: CLOPIDOGREL BISULFATE
     Dosage: UNK
  9. ASPEGIC [Concomitant]
     Active Substance: ASPIRIN DL-LYSINE
     Dosage: UNK

REACTIONS (5)
  - Rectal haemorrhage [Unknown]
  - Metabolic acidosis [Recovered/Resolved]
  - Sepsis [Recovered/Resolved]
  - Diarrhoea [Unknown]
  - Shock [Recovered/Resolved]

NARRATIVE: CASE EVENT DATE: 20160504
